FAERS Safety Report 12283069 (Version 1)
Quarter: 2016Q2

REPORT INFORMATION
  Report Type: Spontaneous
  Country: US (occurrence: US)
  Receive Date: 20160419
  Receipt Date: 20160419
  Transmission Date: 20160815
  Serious: Yes (Other)
  Sender: FDA-Public Use
  Company Number: US-BRISTOL-MYERS SQUIBB COMPANY-BMS-2016-027189

PATIENT
  Age: 49 Year
  Sex: Female
  Weight: 96.15 kg

DRUGS (1)
  1. COUMADIN [Suspect]
     Active Substance: WARFARIN SODIUM
     Indication: ANTITHROMBIN III DEFICIENCY
     Dosage: 4 MG, UNK
     Route: 065

REACTIONS (3)
  - Necrotising fasciitis [Unknown]
  - Osteoarthritis [Unknown]
  - Limb operation [Unknown]

NARRATIVE: CASE EVENT DATE: 200703
